FAERS Safety Report 7125818-6 (Version None)
Quarter: 2010Q4

REPORT INFORMATION
  Report Type: 
  Country: None (occurrence: None)
  Receive Date: 20101129
  Receipt Date: 20101116
  Transmission Date: 20110411
  Serious: Yes (Other)
  Sender: FDA-Public Use
  Company Number: D0068966A

PATIENT
  Sex: Female

DRUGS (1)
  1. ALTARGO [Suspect]
     Indication: IMPETIGO
     Route: 061
     Dates: start: 20100719, end: 20100727

REACTIONS (4)
  - BLOOD BILIRUBIN INCREASED [None]
  - CHILLS [None]
  - HEPATIC ENZYME INCREASED [None]
  - MALAISE [None]
